FAERS Safety Report 4369625-6 (Version None)
Quarter: 2004Q2

REPORT INFORMATION
  Report Type: 
  Country: None (occurrence: None)
  Receive Date: 20040603
  Receipt Date: 20040526
  Transmission Date: 20050107
  Serious: Yes (Hospitalization)
  Sender: FDA-Public Use
  Company Number: US-AMGEN-US075262

PATIENT
  Age: 17 Year
  Sex: Male

DRUGS (6)
  1. ENBREL [Suspect]
     Indication: DRUG USE FOR UNKNOWN INDICATION
     Route: 058
     Dates: start: 20040504, end: 20040504
  2. RITALIN [Concomitant]
  3. REGLAN [Concomitant]
  4. NEXIUM [Concomitant]
  5. CATAPRES [Concomitant]
  6. METFORMIN HCL [Concomitant]

REACTIONS (4)
  - CHEST PAIN [None]
  - HYPERTENSION [None]
  - MUSCULOSKELETAL PAIN [None]
  - PHARYNGOLARYNGEAL PAIN [None]
